FAERS Safety Report 10704373 (Version 3)
Quarter: 2015Q3

REPORT INFORMATION
  Report Type: Report from Study
  Country: ES (occurrence: ES)
  Receive Date: 20150112
  Receipt Date: 20150709
  Transmission Date: 20151125
  Serious: Yes (Hospitalization, Other)
  Sender: FDA-Public Use
  Company Number: PHHO2015ES000497

PATIENT
  Age: 61 Year
  Sex: Female
  Weight: 50.8 kg

DRUGS (5)
  1. TEGRETOL [Suspect]
     Active Substance: CARBAMAZEPINE
     Indication: TRIGEMINAL NEURALGIA
     Dosage: 300 MG, Q8H
     Route: 048
     Dates: start: 20090119
  2. NOLOTIL [Suspect]
     Active Substance: METAMIZOLE
     Indication: TRIGEMINAL NEURALGIA
     Route: 065
     Dates: start: 20140715, end: 20141217
  3. FTY [Suspect]
     Active Substance: FINGOLIMOD HYDROCHLORIDE
     Indication: PRIMARY PROGRESSIVE MULTIPLE SCLEROSIS
     Dosage: 0.5 MG, QD
     Route: 048
     Dates: start: 20140618, end: 20141217
  4. GABAPENTINA [Concomitant]
     Active Substance: GABAPENTIN
     Indication: TRIGEMINAL NEURALGIA
     Dosage: 600 MG, Q8H
     Route: 048
     Dates: start: 20090316
  5. ATORVASTATINE [Concomitant]
     Active Substance: ATORVASTATIN
     Indication: DYSLIPIDAEMIA
     Dosage: 40 MG, QD
     Route: 048
     Dates: start: 201001

REACTIONS (2)
  - Trigeminal neuralgia [Recovered/Resolved with Sequelae]
  - Anaemia macrocytic [Not Recovered/Not Resolved]

NARRATIVE: CASE EVENT DATE: 20140917
